FAERS Safety Report 9254847 (Version 2)
Quarter: 2013Q2

REPORT INFORMATION
  Report Type: Spontaneous
  Country: US (occurrence: None)
  Receive Date: 20130418
  Receipt Date: 20130520
  Transmission Date: 20140414
  Serious: Yes (Hospitalization, Other)
  Sender: FDA-Public Use
  Company Number: AUR-APL-2013-03194

PATIENT
  Sex: 0

DRUGS (1)
  1. PRAMIPEXOLE [Suspect]
     Indication: RESTLESS LEGS SYNDROME

REACTIONS (20)
  - Hallucination, visual [None]
  - Balance disorder [None]
  - Sudden onset of sleep [None]
  - Memory impairment [None]
  - Gait disturbance [None]
  - Confusional state [None]
  - Vision blurred [None]
  - Dizziness [None]
  - Myalgia [None]
  - Local swelling [None]
  - Joint swelling [None]
  - Somnolence [None]
  - Asthenia [None]
  - Drooling [None]
  - Pain [None]
  - Swelling [None]
  - Blood pressure inadequately controlled [None]
  - Blood pressure increased [None]
  - Blood pressure decreased [None]
  - Transient ischaemic attack [None]
